FAERS Safety Report 13038300 (Version 1)
Quarter: 2016Q4

REPORT INFORMATION
  Report Type: Spontaneous
  Country: US (occurrence: US)
  Receive Date: 20161219
  Receipt Date: 20161219
  Transmission Date: 20170207
  Serious: Yes (Hospitalization, Other)
  Sender: FDA-Public Use
  Company Number: US-CIPLA LTD.-2016US23453

PATIENT

DRUGS (7)
  1. LEVOFLOXACIN. [Suspect]
     Active Substance: LEVOFLOXACIN
     Indication: PRODUCTIVE COUGH
     Dosage: UNK
     Route: 065
  2. CLINDAMYCIN. [Suspect]
     Active Substance: CLINDAMYCIN
     Indication: PRODUCTIVE COUGH
     Dosage: UNK
     Route: 065
  3. CLINDAMYCIN. [Suspect]
     Active Substance: CLINDAMYCIN
     Indication: PLEURITIC PAIN
  4. MEROPENEM. [Suspect]
     Active Substance: MEROPENEM
     Indication: PLEURITIC PAIN
  5. MEROPENEM. [Suspect]
     Active Substance: MEROPENEM
     Indication: PRODUCTIVE COUGH
     Dosage: UNK
     Route: 065
  6. VANCOMYCIN [Suspect]
     Active Substance: VANCOMYCIN
     Dosage: UNK
     Route: 065
  7. LEVOFLOXACIN. [Suspect]
     Active Substance: LEVOFLOXACIN
     Indication: PLEURITIC PAIN

REACTIONS (4)
  - Treatment failure [Unknown]
  - Lung abscess [Unknown]
  - Empyema [Unknown]
  - Leuconostoc infection [Unknown]
